FAERS Safety Report 9437810 (Version 1)
Quarter: 2013Q3

REPORT INFORMATION
  Report Type: Spontaneous
  Country: US (occurrence: US)
  Receive Date: 20130802
  Receipt Date: 20130802
  Transmission Date: 20140515
  Serious: No
  Sender: FDA-Public Use
  Company Number: US-BRISTOL-MYERS SQUIBB COMPANY-18828269

PATIENT
  Age: 67 Year
  Sex: Female

DRUGS (3)
  1. COUMADIN [Suspect]
  2. LORATADINE [Suspect]
     Indication: HYPERSENSITIVITY
     Dosage: 1DF:1 TABLET
     Route: 048
     Dates: start: 20130327, end: 20130331
  3. WARFARIN [Suspect]

REACTIONS (1)
  - Blood viscosity increased [Recovering/Resolving]
